FAERS Safety Report 24443294 (Version 3)
Quarter: 2025Q1

REPORT INFORMATION
  Report Type: Spontaneous
  Country: DE (occurrence: DE)
  Receive Date: 20241016
  Receipt Date: 20250218
  Transmission Date: 20250409
  Serious: Yes (Hospitalization, Other)
  Sender: ALKEM
  Company Number: DE-ALKEM LABORATORIES LIMITED-DE-ALKEM-2024-23141

PATIENT
  Age: 25 Year

DRUGS (1)
  1. FINASTERIDE [Suspect]
     Active Substance: FINASTERIDE
     Indication: Alopecia
     Dosage: 1 MILLIGRAM, QD
     Route: 048

REACTIONS (5)
  - Mental impairment [Recovered/Resolved]
  - Depression [Recovered/Resolved]
  - Condition aggravated [Recovered/Resolved]
  - Adverse event [Unknown]
  - Libido disorder [Recovered/Resolved]
